FAERS Safety Report 15934267 (Version 1)
Quarter: 2019Q1

REPORT INFORMATION
  Report Type: Spontaneous
  Country: US (occurrence: US)
  Receive Date: 20190207
  Receipt Date: 20190207
  Transmission Date: 20190417
  Serious: No
  Sender: FDA-Public Use
  Company Number: US-SA-2019SA034485

PATIENT
  Age: 66 Year
  Sex: Male

DRUGS (2)
  1. APIDRA [Suspect]
     Active Substance: INSULIN GLULISINE
  2. LANTUS SOLOSTAR [Suspect]
     Active Substance: INSULIN GLARGINE
     Indication: TYPE 1 DIABETES MELLITUS
     Dosage: 60 U, QD

REACTIONS (3)
  - Hypoacusis [Unknown]
  - Tremor [Unknown]
  - Visual impairment [Unknown]
